FAERS Safety Report 20146751 (Version 5)
Quarter: 2022Q2

REPORT INFORMATION
  Report Type: Spontaneous
  Country: ES (occurrence: ES)
  Receive Date: 20211203
  Receipt Date: 20220502
  Transmission Date: 20220721
  Serious: Yes (Other)
  Sender: FDA-Public Use
  Company Number: ES-ABBVIE-21K-144-4183090-00

PATIENT
  Sex: Female

DRUGS (3)
  1. RINVOQ [Suspect]
     Active Substance: UPADACITINIB
     Indication: Colitis ulcerative
     Route: 048
     Dates: end: 20211123
  2. RINVOQ [Suspect]
     Active Substance: UPADACITINIB
     Dosage: DOSE DECREASED
     Route: 048
     Dates: start: 20211123
  3. SKYRIZI [Suspect]
     Active Substance: RISANKIZUMAB-RZAA
     Indication: Colitis ulcerative
     Route: 058

REACTIONS (21)
  - Blindness [Unknown]
  - Blood pressure increased [Recovered/Resolved]
  - Eye pain [Not Recovered/Not Resolved]
  - Herpes ophthalmic [Unknown]
  - Feeling of despair [Unknown]
  - Emotional distress [Unknown]
  - Corneal opacity [Recovering/Resolving]
  - Ulcer [Unknown]
  - Keratitis [Recovered/Resolved]
  - Ocular hyperaemia [Unknown]
  - Eye oedema [Recovered/Resolved]
  - Herpes virus infection [Unknown]
  - Herpes virus infection [Not Recovered/Not Resolved]
  - Dizziness [Unknown]
  - Off label use [Unknown]
  - Eye swelling [Unknown]
  - Immunodeficiency [Unknown]
  - Illness [Not Recovered/Not Resolved]
  - Eye disorder [Not Recovered/Not Resolved]
  - Skin plaque [Recovering/Resolving]
  - Pyrexia [Unknown]

NARRATIVE: CASE EVENT DATE: 20211127
